FAERS Safety Report 7142108-6 (Version None)
Quarter: 2010Q4

REPORT INFORMATION
  Report Type: 
  Country: None (occurrence: None)
  Receive Date: 20101203
  Receipt Date: 20101203
  Transmission Date: 20110411
  Serious: Yes (Other)
  Sender: FDA-Public Use
  Company Number: None

PATIENT
  Age: 75 Year
  Sex: Female
  Weight: 68.9467 kg

DRUGS (20)
  1. JANUMET [Suspect]
     Indication: TYPE 2 DIABETES MELLITUS
     Dosage: 50/1000MG BID PO
     Route: 048
     Dates: start: 20101001, end: 20101129
  2. LORTAB [Concomitant]
  3. POTASSIUM CHLORIDE [Concomitant]
  4. SPIRONOLACTONE [Concomitant]
  5. SYNTHROID [Suspect]
  6. ARICEPT [Concomitant]
  7. SYMBICORT [Concomitant]
  8. CARDIZEM [Concomitant]
  9. DIGOXIN [Concomitant]
  10. COUMADIN [Concomitant]
  11. NTG PRN [Concomitant]
  12. FLUOXETINE [Concomitant]
  13. PLAVIX [Concomitant]
  14. XOPENEX [Concomitant]
  15. RYTHMOL [Concomitant]
  16. ASPIRIN [Concomitant]
  17. SPIRIVA [Concomitant]
  18. ACETAMINOPHEN [Concomitant]
  19. METFORMIN HCL [Suspect]
  20. ACTOS [Suspect]

REACTIONS (1)
  - BLOOD GLUCOSE INCREASED [None]
